FAERS Safety Report 8336729-2 (Version None)
Quarter: 2012Q2

REPORT INFORMATION
  Report Type: 
  Country: None (occurrence: None)
  Receive Date: 20120504
  Receipt Date: 20120424
  Transmission Date: 20120825
  Serious: Yes (Other)
  Sender: FDA-Public Use
  Company Number: US-SANOFI-AVENTIS-2012SA028923

PATIENT
  Sex: Female

DRUGS (3)
  1. LANTUS [Suspect]
     Dosage: DOSE:47 UNIT(S)
     Route: 058
  2. LANTUS [Suspect]
     Dosage: DOSE:40 UNIT(S)
     Route: 058
     Dates: start: 20111001
  3. NOVOLOG [Concomitant]
     Dosage: AS NEEDED

REACTIONS (4)
  - ABORTION SPONTANEOUS [None]
  - WEIGHT INCREASED [None]
  - WEIGHT DECREASED [None]
  - BLOOD GLUCOSE INCREASED [None]
